FAERS Safety Report 8335017-8 (Version None)
Quarter: 2012Q2

REPORT INFORMATION
  Report Type: 
  Country: None (occurrence: None)
  Receive Date: 20120503
  Receipt Date: 20100330
  Transmission Date: 20120825
  Serious: No
  Sender: FDA-Public Use
  Company Number: US-TEVA-2010001872

PATIENT
  Sex: Female

DRUGS (4)
  1. LOW-OGESTREL-21 [Concomitant]
     Dates: start: 20080101
  2. XYREM [Concomitant]
     Indication: NARCOLEPSY
     Dosage: 3 GRAM;
     Dates: start: 20100301
  3. NUVIGIL [Suspect]
     Indication: NARCOLEPSY
     Dosage: 250 MILLIGRAM;
     Route: 048
     Dates: start: 20100101, end: 20100301
  4. NUVIGIL [Suspect]
     Dosage: 125 MILLIGRAM;
     Route: 048
     Dates: start: 20100301

REACTIONS (4)
  - PSYCHOMOTOR HYPERACTIVITY [None]
  - METRORRHAGIA [None]
  - ANXIETY [None]
  - TREMOR [None]
